FAERS Safety Report 9616396 (Version 1)
Quarter: 2013Q4

REPORT INFORMATION
  Report Type: Spontaneous
  Country: IT (occurrence: IT)
  Receive Date: 20131011
  Receipt Date: 20131011
  Transmission Date: 20140711
  Serious: Yes (Hospitalization)
  Sender: FDA-Public Use
  Company Number: IT-TEVA-435616ISR

PATIENT
  Age: 43 Year
  Sex: Female

DRUGS (7)
  1. PAROXETINA [Suspect]
     Indication: INTENTIONAL SELF-INJURY
     Route: 048
     Dates: start: 20130916, end: 20130916
  2. MINIAS 2,5MG/ML [Suspect]
     Indication: INTENTIONAL SELF-INJURY
     Route: 048
     Dates: start: 20130916, end: 20130916
  3. XANAX 1MG GREENSTONE LTD [Suspect]
     Indication: INTENTIONAL SELF-INJURY
     Route: 048
     Dates: start: 20130916, end: 20130916
  4. ALCOOL [Suspect]
  5. MINIAS 2,5MG/ML [Concomitant]
     Indication: DEPRESSION
     Route: 048
     Dates: start: 201308
  6. XANAX 1MG [Concomitant]
     Indication: DEPRESSION
     Route: 048
     Dates: start: 201308
  7. PAROXETINA [Concomitant]
     Indication: DEPRESSION
     Dates: start: 201308

REACTIONS (5)
  - Confusional state [Recovering/Resolving]
  - Sopor [Recovering/Resolving]
  - Oxygen saturation decreased [Recovering/Resolving]
  - Drug abuse [Recovering/Resolving]
  - Intentional self-injury [Recovering/Resolving]
